FAERS Safety Report 12964664 (Version 3)
Quarter: 2017Q1

REPORT INFORMATION
  Report Type: Report from Study
  Country: US (occurrence: US)
  Receive Date: 20161122
  Receipt Date: 20170119
  Transmission Date: 20170428
  Serious: Yes (Hospitalization, Other)
  Sender: FDA-Public Use
  Company Number: US-TAKEDA-2016MPI009887

PATIENT
  Age: 64 Year
  Sex: Male
  Weight: 79.1 kg

DRUGS (41)
  1. LENALIDOMIDE [Suspect]
     Active Substance: LENALIDOMIDE
     Indication: PLASMA CELL MYELOMA
     Dosage: 10 MG, UNK
     Route: 048
     Dates: start: 20160909, end: 20161103
  2. NORVASC [Concomitant]
     Active Substance: AMLODIPINE BESYLATE
     Indication: HYPERTENSION
     Dosage: 10 MG, QD
     Route: 048
     Dates: start: 20140509
  3. HYDRALAZINE HCL [Concomitant]
     Active Substance: HYDRALAZINE HYDROCHLORIDE
     Indication: HYPERTENSION
     Dosage: 75 MG, QID
     Route: 048
     Dates: start: 20160711
  4. HYDROCHLORTHIAZID [Concomitant]
     Active Substance: HYDROCHLOROTHIAZIDE
     Dosage: 25 MG, QD
     Route: 048
  5. COLACE [Concomitant]
     Active Substance: DOCUSATE SODIUM
     Dosage: 100 MG, UNK
     Route: 048
  6. PROTONIX                           /00661201/ [Concomitant]
     Active Substance: OMEPRAZOLE
     Dosage: 40 MG, BID
     Route: 048
  7. APRESOLINE HYDROCHLORIDE [Concomitant]
     Active Substance: HYDRALAZINE HYDROCHLORIDE
     Indication: HYPERTENSION
     Dosage: 20 MG, UNK
     Route: 042
  8. HYDROCORTISONE. [Concomitant]
     Active Substance: HYDROCORTISONE
     Dosage: UNK, BID
     Route: 061
  9. LISINOPRIL. [Suspect]
     Active Substance: LISINOPRIL
     Indication: HYPERTENSION
     Dosage: 40 MG, QD
     Route: 048
     Dates: start: 20150424, end: 20161113
  10. COLACE [Concomitant]
     Active Substance: DOCUSATE SODIUM
     Dosage: 250 MG, UNK
     Route: 048
  11. ZOFRAN [Concomitant]
     Active Substance: ONDANSETRON HYDROCHLORIDE
     Dosage: UNK
     Route: 042
  12. CATAPRES                           /00171101/ [Concomitant]
     Active Substance: CLONIDINE
     Indication: HYPERTENSION
     Dosage: 0.1 MG, UNK
     Route: 048
  13. FERROUS SULFATE. [Concomitant]
     Active Substance: FERROUS SULFATE
     Dosage: 324 MG, TID
  14. HEPARIN [Concomitant]
     Active Substance: HEPARIN SODIUM
     Indication: THROMBOSIS PROPHYLAXIS
     Dosage: UNK
     Route: 058
  15. NARCAN [Concomitant]
     Active Substance: NALOXONE HYDROCHLORIDE
     Dosage: 0.1 MG, UNK
     Route: 042
  16. TYLENOL [Concomitant]
     Active Substance: ACETAMINOPHEN
     Dosage: 650 MG, UNK
     Route: 048
  17. ALBUMIN [Concomitant]
     Active Substance: ALBUMIN HUMAN
     Dosage: 50 ML, UNK
     Route: 042
  18. VERSED [Concomitant]
     Active Substance: MIDAZOLAM HYDROCHLORIDE
     Dosage: UNK, QD
     Route: 042
  19. LOVENOX [Concomitant]
     Active Substance: ENOXAPARIN SODIUM
     Indication: DEEP VEIN THROMBOSIS
     Dosage: UNK, BID
     Route: 058
     Dates: start: 20160330
  20. THERAPEUTIC MULTIVITAMIN           /02278501/ [Concomitant]
     Dosage: UNK, QD
     Route: 048
     Dates: start: 20160420
  21. BACTRIM DS [Concomitant]
     Active Substance: SULFAMETHOXAZOLE\TRIMETHOPRIM
     Indication: PROPHYLAXIS
     Dosage: UNK UNK, QD
  22. LIDOCAINE. [Concomitant]
     Active Substance: LIDOCAINE
     Dosage: UNK %, UNK
  23. SUBLIMAZE [Concomitant]
     Active Substance: FENTANYL CITRATE
     Dosage: UNK
     Route: 042
  24. ROMAZICON [Concomitant]
     Active Substance: FLUMAZENIL
     Dosage: 0.2 MG, UNK
     Route: 042
  25. ZOVIRAX [Concomitant]
     Active Substance: ACYCLOVIR
     Dosage: 200 MG, BID
     Route: 048
  26. IMDUR [Concomitant]
     Active Substance: ISOSORBIDE MONONITRATE
     Dosage: 30 MG, QD
     Route: 048
  27. ZOFRAN [Concomitant]
     Active Substance: ONDANSETRON HYDROCHLORIDE
     Dosage: 4 MG, UNK
     Route: 048
  28. IXAZOMIB [Suspect]
     Active Substance: IXAZOMIB
     Indication: PLASMA CELL MYELOMA
     Dosage: 4 MG, UNK
     Route: 048
     Dates: start: 20160711, end: 20160823
  29. OSCAL                              /00514701/ [Concomitant]
     Dosage: UNK, BID
     Route: 048
     Dates: start: 20160420
  30. OMEPRAZOLE. [Concomitant]
     Active Substance: OMEPRAZOLE
     Dosage: 20 MG, BID
     Route: 048
     Dates: start: 20160331
  31. VALTREX [Concomitant]
     Active Substance: VALACYCLOVIR HYDROCHLORIDE
     Indication: PROPHYLAXIS
     Dosage: 500 MG, BID
     Route: 048
     Dates: start: 20160630
  32. CHRONULAC [Concomitant]
     Active Substance: LACTULOSE
     Dosage: 20 G, UNK
     Route: 048
  33. PROVENTIL [Concomitant]
     Active Substance: ALBUTEROL
     Dosage: 2.5 MG, UNK
  34. COREG [Concomitant]
     Active Substance: CARVEDILOL
     Indication: HYPERTENSION
     Dosage: 50 MG, BID
     Route: 048
     Dates: start: 20160310
  35. COREG [Concomitant]
     Active Substance: CARVEDILOL
     Dosage: 25 MG, QD
     Route: 048
  36. DAPSONE. [Concomitant]
     Active Substance: DAPSONE
     Indication: PROPHYLAXIS
     Dosage: 50 MG, BID
     Route: 048
     Dates: start: 20161013
  37. METFORMIN [Concomitant]
     Active Substance: METFORMIN HYDROCHLORIDE
     Dosage: 500 MG, QD
  38. ERGOCALCIFEROL. [Concomitant]
     Active Substance: ERGOCALCIFEROL
     Dosage: UNK
  39. PRED FORTE [Concomitant]
     Active Substance: PREDNISOLONE ACETATE
     Dosage: UNK, QID
  40. DIPHENHYDRAMINE HCL [Concomitant]
     Active Substance: DIPHENHYDRAMINE HYDROCHLORIDE
     Dosage: 25 MG, UNK
     Route: 048
  41. ENULOSE [Concomitant]
     Active Substance: LACTULOSE
     Dosage: 20 G, UNK
     Route: 048

REACTIONS (3)
  - Lung infection [Recovered/Resolved]
  - Liver disorder [Recovered/Resolved]
  - Renal failure [Recovered/Resolved with Sequelae]

NARRATIVE: CASE EVENT DATE: 20161113
